FAERS Safety Report 17186408 (Version 2)
Quarter: 2020Q1

REPORT INFORMATION
  Report Type: Report from Study
  Country: US (occurrence: US)
  Receive Date: 20191220
  Receipt Date: 20200103
  Transmission Date: 20200409
  Serious: Yes (Death, Hospitalization, Other)
  Sender: FDA-Public Use
  Company Number: US-ASTELLAS-2019US038197

PATIENT
  Sex: Male

DRUGS (1)
  1. ENZALUTAMIDE [Suspect]
     Active Substance: ENZALUTAMIDE
     Indication: PROSTATE CANCER
     Route: 048
     Dates: start: 20190130, end: 201912

REACTIONS (5)
  - Infection [Recovered/Resolved]
  - Death [Fatal]
  - Urinary tract infection [Not Recovered/Not Resolved]
  - Ileus [Recovered/Resolved]
  - Aspiration [Unknown]
